FAERS Safety Report 21122424 (Version 2)
Quarter: 2022Q3

REPORT INFORMATION
  Report Type: Spontaneous
  Country: US (occurrence: US)
  Receive Date: 20220723
  Receipt Date: 20220908
  Transmission Date: 20221027
  Serious: No
  Sender: FDA-Public Use
  Company Number: US-BRISTOL-MYERS SQUIBB COMPANY-2022-076954

PATIENT
  Age: 66 Year
  Sex: Female

DRUGS (1)
  1. POMALYST [Suspect]
     Active Substance: POMALIDOMIDE
     Indication: Product used for unknown indication
     Dosage: FREQ - 2MG DAILY FOR 21 DAYS
     Route: 048
     Dates: start: 202105

REACTIONS (3)
  - Laboratory test abnormal [Unknown]
  - Product prescribing issue [Unknown]
  - Constipation [Unknown]

NARRATIVE: CASE EVENT DATE: 20220719
